FAERS Safety Report 7467269-0 (Version None)
Quarter: 2011Q2

REPORT INFORMATION
  Report Type: 
  Country: None (occurrence: None)
  Receive Date: 20110509
  Receipt Date: 20101122
  Transmission Date: 20111010
  Serious: Yes (Other)
  Sender: FDA-Public Use
  Company Number: US-ALEXION-A201001302

PATIENT
  Sex: Female
  Weight: 77.098 kg

DRUGS (5)
  1. SOLIRIS [Suspect]
     Indication: PAROXYSMAL NOCTURNAL HAEMOGLOBINURIA
     Dosage: 900 MG, Q 11 DAYS
     Route: 042
  2. PROCRIT                            /00909301/ [Concomitant]
     Dosage: UNK, Q 11 DAYS
  3. PREDNISONE [Concomitant]
     Indication: NEPHRITIS
     Dosage: 20 MG, QD
  4. KEPPRA [Concomitant]
     Indication: CONVULSION
  5. WARFARIN [Concomitant]
     Dosage: UNK

REACTIONS (3)
  - CONVULSION [None]
  - FALL [None]
  - HEAD INJURY [None]
